FAERS Safety Report 8260888-3 (Version None)
Quarter: 2012Q2

REPORT INFORMATION
  Report Type: 
  Country: None (occurrence: None)
  Receive Date: 20120402
  Receipt Date: 20120322
  Transmission Date: 20120825
  Serious: Yes (Other)
  Sender: FDA-Public Use
  Company Number: 2012-028932

PATIENT
  Sex: Male

DRUGS (1)
  1. ALKA-SELTZER PLUS NIGHT COLD (ACETYLSALICYLIC ACID + DEXTROMETHORPHAN [Suspect]
     Dosage: 2 DF, ONCE, ORAL
     Route: 048

REACTIONS (1)
  - HYPERSOMNIA [None]
